FAERS Safety Report 4963003-4 (Version None)
Quarter: 2006Q1

REPORT INFORMATION
  Report Type: 
  Country: None (occurrence: None)
  Receive Date: 20060331
  Receipt Date: 20060323
  Transmission Date: 20060701
  Serious: Yes (Other)
  Sender: FDA-Public Use
  Company Number: S06-USA-01048-01

PATIENT
  Age: 55 Year
  Sex: Male

DRUGS (2)
  1. LEXAPRO [Suspect]
     Indication: DEPRESSION
     Dosage: 5 MG QD PO
     Route: 048
     Dates: start: 20040501
  2. CHOLESTEROL MEDCIATION (NOS) [Concomitant]

REACTIONS (1)
  - NEUROPATHY PERIPHERAL [None]
